FAERS Safety Report 14256968 (Version 2)
Quarter: 2018Q1

REPORT INFORMATION
  Report Type: Spontaneous
  Country: US (occurrence: US)
  Receive Date: 20171206
  Receipt Date: 20180215
  Transmission Date: 20180508
  Serious: Yes (Hospitalization, Disabling)
  Sender: FDA-Public Use
  Company Number: US-IMPAX LABORATORIES, INC-2017-IPXL-03415

PATIENT
  Age: 63 Year
  Sex: Male

DRUGS (13)
  1. FUROSEMIDE. [Concomitant]
     Active Substance: FUROSEMIDE
     Indication: OEDEMA
     Dosage: 20 MG, 2 /DAY; MORNING AND NOON
     Route: 048
     Dates: start: 20170916
  2. RYTARY [Suspect]
     Active Substance: CARBIDOPA\LEVODOPA
     Indication: PRODUCT USED FOR UNKNOWN INDICATION
     Dosage: 61.25/245MG, 3 CAPSULES, 5 TIMES A DAY
     Route: 048
     Dates: start: 201609
  3. RYTARY [Suspect]
     Active Substance: CARBIDOPA\LEVODOPA
     Dosage: 61.25/245 MG; 3 CAPSULES, EVERY 3HR
     Route: 048
  4. DOCUSATE [Concomitant]
     Active Substance: DOCUSATE
     Indication: CONSTIPATION
     Dosage: 100 MG, 1 /DAY
     Route: 048
     Dates: start: 20170916
  5. ESCITALOPRAM [Concomitant]
     Active Substance: ESCITALOPRAM OXALATE
     Indication: DEPRESSION
     Dosage: 10 MG, 1 /DAY
     Route: 048
     Dates: start: 20170916
  6. MULTIVITAMIN [Concomitant]
     Active Substance: VITAMINS
     Indication: SUPPLEMENTATION THERAPY
     Dosage: 1 DF, 1 /DAY; MORNING
     Route: 048
     Dates: start: 20170916
  7. OXYBUTININ [Concomitant]
     Active Substance: OXYBUTYNIN
     Indication: URINARY RETENTION
     Dosage: 10 MG, 1 /DAY
     Route: 048
     Dates: start: 20170916
  8. POTASSIUM CHLORIDE. [Concomitant]
     Active Substance: POTASSIUM CHLORIDE
     Indication: MINERAL SUPPLEMENTATION
     Dosage: 20 MEQ, 2 /DAY
     Route: 048
     Dates: start: 20170916
  9. AZATHIOPRINE. [Concomitant]
     Active Substance: AZATHIOPRINE
     Indication: PARKINSON^S DISEASE
     Dosage: 50 MG, 1 /DAY; MORNING
     Route: 048
  10. RYTARY [Suspect]
     Active Substance: CARBIDOPA\LEVODOPA
     Dosage: 61.25/245 MG; 4 CAPSULES, EVERY 4HR
     Route: 048
  11. LORATADINE. [Concomitant]
     Active Substance: LORATADINE
     Indication: HYPERSENSITIVITY
     Dosage: 10 MG, 1 /DAY
     Route: 048
     Dates: start: 20170916
  12. PRILOSEC [Concomitant]
     Active Substance: OMEPRAZOLE MAGNESIUM
     Indication: PRODUCT USED FOR UNKNOWN INDICATION
     Dosage: 40 MG, 1 /DAY
     Route: 048
     Dates: start: 20170916
  13. MYRBETRIQ [Concomitant]
     Active Substance: MIRABEGRON
     Indication: URINARY TRACT OBSTRUCTION
     Dosage: 50 MG, 1 /DAY; AT BEDTIME
     Route: 048
     Dates: start: 20170916

REACTIONS (5)
  - Prescribed overdose [Unknown]
  - Cognitive disorder [Unknown]
  - Gait inability [Not Recovered/Not Resolved]
  - Speech disorder [Not Recovered/Not Resolved]
  - Feeding disorder [Unknown]
